FAERS Safety Report 6278572-4 (Version None)
Quarter: 2009Q3

REPORT INFORMATION
  Report Type: 
  Country: None (occurrence: None)
  Receive Date: 20090722
  Receipt Date: 20081013
  Transmission Date: 20100115
  Serious: No
  Sender: FDA-Public Use
  Company Number: US-BAUSCH-2008BL004398

PATIENT
  Age: 46 Year
  Sex: Female

DRUGS (1)
  1. OPCON-A [Suspect]
     Indication: EYE ALLERGY
     Route: 047
     Dates: start: 19980101

REACTIONS (5)
  - ASTHENOPIA [None]
  - DRY EYE [None]
  - FOREIGN BODY SENSATION IN EYES [None]
  - REBOUND EFFECT [None]
  - VISUAL ACUITY REDUCED [None]
